FAERS Safety Report 9552112 (Version 3)
Quarter: 2013Q4

REPORT INFORMATION
  Report Type: Spontaneous
  Country: VN (occurrence: VN)
  Receive Date: 20130925
  Receipt Date: 20131002
  Transmission Date: 20140711
  Serious: Yes (Life-Threatening, Other)
  Sender: FDA-Public Use
  Company Number: PHHY2013VN106326

PATIENT
  Age: 75 Year
  Sex: Female
  Weight: 50 kg

DRUGS (3)
  1. ACLASTA [Suspect]
     Indication: OSTEOPOROSIS POSTMENOPAUSAL
     Dosage: 5 MG, ONCE A YEAR
     Route: 042
     Dates: start: 20130919
  2. AMLOR [Concomitant]
     Dosage: UNK UKN, UNK
  3. VOLTAREN//DICLOFENAC SODIUM [Concomitant]
     Dosage: UNK UKN, UNK

REACTIONS (8)
  - Arrhythmia [Recovered/Resolved]
  - Parasystole [Recovered/Resolved]
  - Atrial fibrillation [Recovered/Resolved]
  - Chest pain [Recovered/Resolved]
  - Dyspnoea [Recovered/Resolved]
  - Palpitations [Recovered/Resolved]
  - C-reactive protein increased [Recovered/Resolved]
  - Brain natriuretic peptide increased [Recovered/Resolved]
